FAERS Safety Report 19846434 (Version 2)
Quarter: 2021Q4

REPORT INFORMATION
  Report Type: Spontaneous
  Country: US (occurrence: US)
  Receive Date: 20210917
  Receipt Date: 20211101
  Transmission Date: 20220303
  Serious: No
  Sender: FDA-Public Use
  Company Number: US-TEVA-2021-US-1954627

PATIENT
  Age: 57 Year
  Sex: Female

DRUGS (2)
  1. AJOVY [Suspect]
     Active Substance: FREMANEZUMAB-VFRM
     Indication: Migraine without aura
     Dosage: 225MG/1.5ML
     Route: 065
     Dates: start: 20210113
  2. ZEMBRACE SYMTOUCH [Concomitant]
     Active Substance: SUMATRIPTAN SUCCINATE
     Route: 065

REACTIONS (3)
  - Injection site rash [Not Recovered/Not Resolved]
  - Syringe issue [Unknown]
  - Incorrect dose administered by device [Unknown]

NARRATIVE: CASE EVENT DATE: 20210101
